FAERS Safety Report 18450451 (Version 5)
Quarter: 2020Q4

REPORT INFORMATION
  Report Type: Spontaneous
  Country: KZ (occurrence: KZ)
  Receive Date: 20201030
  Receipt Date: 20201228
  Transmission Date: 20210114
  Serious: Yes (Death, Hospitalization, Other)
  Sender: FDA-Public Use
  Company Number: NVSC2020KZ286904

PATIENT
  Age: 39 Year
  Sex: Female

DRUGS (11)
  1. INFESOL [Concomitant]
     Indication: PRODUCT USED FOR UNKNOWN INDICATION
     Dosage: 250 ML
     Route: 065
  2. TAFINLAR [Suspect]
     Active Substance: DABRAFENIB MESYLATE
     Dosage: 150 MG, BID
     Route: 065
     Dates: start: 20200828, end: 20201130
  3. MEKINIST [Suspect]
     Active Substance: TRAMETINIB DIMETHYL SULFOXIDE
     Dosage: 2 MG, QD
     Route: 065
     Dates: start: 20200828, end: 20201130
  4. TAFINLAR [Suspect]
     Active Substance: DABRAFENIB MESYLATE
     Dosage: UNK
     Route: 065
     Dates: start: 202009
  5. SODIUM CHLORIDE. [Concomitant]
     Active Substance: SODIUM CHLORIDE
     Indication: PRODUCT USED FOR UNKNOWN INDICATION
     Dosage: UNK (0.9% 200 ML SOLUTION)
     Route: 065
  6. KETONAL [Concomitant]
     Indication: PRODUCT USED FOR UNKNOWN INDICATION
     Dosage: UNK
     Route: 065
  7. AMINOPHYLLINE. [Concomitant]
     Active Substance: AMINOPHYLLINE
     Indication: DYSPNOEA
     Dosage: 5 ML (5.0 ML)
     Route: 042
  8. ASCORBIC ACID. [Concomitant]
     Active Substance: ASCORBIC ACID
     Indication: PRODUCT USED FOR UNKNOWN INDICATION
     Dosage: UNK (5% -10ML FOR SODIUM CHLORIDE SOLUTION 0.9% - 200 ML)
     Route: 065
  9. TAFINLAR [Suspect]
     Active Substance: DABRAFENIB MESYLATE
     Indication: MALIGNANT MELANOMA
     Dosage: 150 MG, BID
     Route: 065
     Dates: start: 20200828
  10. MEKINIST [Suspect]
     Active Substance: TRAMETINIB DIMETHYL SULFOXIDE
     Indication: MALIGNANT MELANOMA
     Dosage: 2 MG, QD
     Route: 065
     Dates: start: 20200828
  11. MEKINIST [Suspect]
     Active Substance: TRAMETINIB DIMETHYL SULFOXIDE
     Dosage: UNK
     Route: 065
     Dates: start: 202009

REACTIONS (16)
  - Brain neoplasm [Fatal]
  - Pain [Fatal]
  - Oedema peripheral [Fatal]
  - General physical health deterioration [Not Recovered/Not Resolved]
  - Malignant melanoma [Fatal]
  - Malignant neoplasm progression [Fatal]
  - Arthralgia [Fatal]
  - Metastases to skin [Fatal]
  - BRAF V600E mutation positive [Fatal]
  - Blood lactate dehydrogenase abnormal [Not Recovered/Not Resolved]
  - Spinal pain [Fatal]
  - Dyspnoea [Fatal]
  - Tinnitus [Fatal]
  - Dizziness [Fatal]
  - Body temperature increased [Fatal]
  - Visual impairment [Fatal]

NARRATIVE: CASE EVENT DATE: 202009
